FAERS Safety Report 12233070 (Version 1)
Quarter: 2016Q2

REPORT INFORMATION
  Report Type: Other
  Country: DE (occurrence: DE)
  Receive Date: 20160403
  Receipt Date: 20160403
  Transmission Date: 20160815
  Serious: Yes (Life-Threatening, Hospitalization)
  Sender: FDA-Public Use
  Company Number: DE-MYLANLABS-2016M1012873

PATIENT

DRUGS (2)
  1. METFORMIN [Suspect]
     Active Substance: METFORMIN HYDROCHLORIDE
     Indication: DIABETES MELLITUS
     Dosage: 2250 MG, QD (1000MG  - 0 - 1250 MG)
     Route: 048
     Dates: start: 2010
  2. GLIMEPIRID [Concomitant]
     Active Substance: GLIMEPIRIDE
     Dosage: UNK
     Dates: start: 2010

REACTIONS (5)
  - Respiratory failure [Not Recovered/Not Resolved]
  - Prerenal failure [Recovering/Resolving]
  - Respiratory failure [Recovering/Resolving]
  - Lactic acidosis [Recovering/Resolving]
  - Anuria [Not Recovered/Not Resolved]

NARRATIVE: CASE EVENT DATE: 201603
